FAERS Safety Report 8165396-6 (Version None)
Quarter: 2012Q1

REPORT INFORMATION
  Report Type: 
  Country: None (occurrence: None)
  Receive Date: 20120223
  Receipt Date: 20120223
  Transmission Date: 20120608
  Serious: Yes (Death)
  Sender: FDA-Public Use
  Company Number: None

PATIENT
  Age: 73 Year
  Sex: Female
  Weight: 54.4316 kg

DRUGS (5)
  1. LISINOPRIL [Suspect]
  2. HALDOL [Suspect]
     Indication: RESTLESSNESS
     Route: 042
     Dates: start: 20110101
  3. FENTANYL [Suspect]
     Route: 042
  4. RAMIPRIL [Suspect]
     Indication: HYPERTENSION
     Dates: start: 20100101
  5. RAMIPRIL [Suspect]
     Indication: HYPERTENSION
     Dates: start: 20110101

REACTIONS (3)
  - DIARRHOEA [None]
  - RENAL FAILURE ACUTE [None]
  - DIALYSIS [None]
